FAERS Safety Report 7341243-7 (Version None)
Quarter: 2011Q1

REPORT INFORMATION
  Report Type: 
  Country: None (occurrence: None)
  Receive Date: 20110309
  Receipt Date: 20110222
  Transmission Date: 20110831
  Serious: Yes (Disabling)
  Sender: FDA-Public Use
  Company Number: PHHY2011US10893

PATIENT
  Sex: Female
  Weight: 68.934 kg

DRUGS (20)
  1. VITAMIN E [Concomitant]
  2. FOLIC ACID [Concomitant]
  3. ORENCIA [Concomitant]
  4. PREDNISONE [Concomitant]
     Dosage: 5 MG, UNK
  5. WELCHOL [Concomitant]
  6. ATIVAN [Concomitant]
     Dosage: 0.5 MG, BID
  7. AMARYL [Concomitant]
     Dosage: 1 MG, UNK
  8. BENICAR [Concomitant]
     Dosage: 40 MG, UNK
  9. LIPOFENE [Concomitant]
     Dosage: UNK
  10. EPIDURAL [Concomitant]
  11. RENKABE [Concomitant]
  12. ASPIRIN [Concomitant]
     Dosage: 81 MG, UNK
  13. OXYCODONE HCL AND ACETAMINOPHEN [Concomitant]
  14. VITAMIN D [Concomitant]
  15. PLAVIX [Concomitant]
  16. METHOTREXATE [Concomitant]
  17. RECLAST [Suspect]
     Indication: OSTEOPOROSIS
     Dosage: 5MG/100ML INFUSION
     Dates: start: 20100513
  18. FISH OIL [Concomitant]
  19. OTRIVIN [Concomitant]
  20. LUNESTA [Concomitant]

REACTIONS (12)
  - FACIAL PAIN [None]
  - PAIN [None]
  - MYALGIA [None]
  - C-REACTIVE PROTEIN INCREASED [None]
  - PAIN IN JAW [None]
  - FATIGUE [None]
  - GINGIVAL SWELLING [None]
  - BONE PAIN [None]
  - EYE PAIN [None]
  - INSULIN C-PEPTIDE INCREASED [None]
  - RED BLOOD CELL SEDIMENTATION RATE INCREASED [None]
  - HEADACHE [None]
